FAERS Safety Report 24410321 (Version 1)
Quarter: 2024Q4

REPORT INFORMATION
  Report Type: Spontaneous
  Country: US (occurrence: US)
  Receive Date: 20241008
  Receipt Date: 20241008
  Transmission Date: 20250114
  Serious: Yes (Other)
  Sender: RANBAXY
  Company Number: US-SUN PHARMACEUTICAL INDUSTRIES LTD-2024R1-471681

PATIENT
  Age: 45 Year
  Sex: Male

DRUGS (8)
  1. CLINDAMYCIN [Suspect]
     Active Substance: CLINDAMYCIN
     Indication: Ankylosing spondylitis
     Dosage: UNK
     Route: 065
  2. PREDNISONE [Suspect]
     Active Substance: PREDNISONE
     Indication: Gout
     Dosage: 40 MILLIGRAM, DAILY
     Route: 065
  3. PREDNISONE [Suspect]
     Active Substance: PREDNISONE
     Indication: Psoriatic arthropathy
  4. CLOBETASOL [Suspect]
     Active Substance: CLOBETASOL
     Indication: Ankylosing spondylitis
     Dosage: UNK UNK, DAILY
     Route: 065
  5. CLOBETASOL [Suspect]
     Active Substance: CLOBETASOL
     Dosage: UNK UNK, BID
     Route: 065
  6. ADALIMUMAB [Suspect]
     Active Substance: ADALIMUMAB
     Indication: Gout
     Dosage: 40 MILLIGRAM
     Route: 065
  7. ADALIMUMAB [Suspect]
     Active Substance: ADALIMUMAB
     Indication: Psoriatic arthropathy
  8. CALCIPOTRIENE [Suspect]
     Active Substance: CALCIPOTRIENE
     Indication: Ankylosing spondylitis
     Dosage: UNK
     Route: 065

REACTIONS (1)
  - Condition aggravated [Unknown]
